FAERS Safety Report 5734952-4 (Version None)
Quarter: 2008Q2

REPORT INFORMATION
  Report Type: 
  Country: None (occurrence: None)
  Receive Date: 20080508
  Receipt Date: 20080501
  Transmission Date: 20081010
  Serious: Yes (Death)
  Sender: FDA-Public Use
  Company Number: 2006-144385-NL

PATIENT
  Age: 40 Year
  Sex: Female
  Weight: 52.2 kg

DRUGS (1)
  1. NUVARING [Suspect]
     Indication: CONTRACEPTION
     Dosage: VAGINAL, 4 WEEKS IN/ 5 DAYS OUT
     Route: 067
     Dates: start: 20050614, end: 20050715

REACTIONS (7)
  - CARDIO-RESPIRATORY ARREST [None]
  - DEEP VEIN THROMBOSIS [None]
  - ELECTROMECHANICAL DISSOCIATION [None]
  - GRAND MAL CONVULSION [None]
  - PULMONARY EMBOLISM [None]
  - PULSE ABSENT [None]
  - UNRESPONSIVE TO STIMULI [None]
